FAERS Safety Report 16342738 (Version 1)
Quarter: 2019Q2

REPORT INFORMATION
  Report Type: Spontaneous
  Country: US (occurrence: US)
  Receive Date: 20190416
  Receipt Date: 20190416
  Transmission Date: 20190711
  Serious: Yes (Hospitalization)
  Sender: FDA-Public Use
  Company Number: None

PATIENT
  Age: 11 Year
  Sex: Female
  Weight: 22.5 kg

DRUGS (1)
  1. CABOZANTINIB (NF105) [Suspect]
     Active Substance: CABOZANTINIB
     Dosage: 5 TIMES WEEKLY
     Route: 048
     Dates: start: 20190328, end: 20190411

REACTIONS (1)
  - Blood pressure increased [None]

NARRATIVE: CASE EVENT DATE: 20190411
